FAERS Safety Report 9179516 (Version 1)
Quarter: 2012Q4

REPORT INFORMATION
  Report Type: 
  Country: JP (occurrence: JP)
  Receive Date: 20121029
  Receipt Date: 20121029
  Transmission Date: 20130627
  Serious: Yes (Other)
  Sender: FDA-Public Use
  Company Number: JP-009507513-1210JPN011477

PATIENT
  Age: 59 Year
  Sex: Male
  Weight: 64 kg

DRUGS (6)
  1. PEGINTRON [Suspect]
     Indication: HEPATITIS C
     Dosage: 100 Microgram, qw
     Route: 058
     Dates: start: 201203, end: 201203
  2. REBETOL [Suspect]
     Indication: HEPATITIS C
     Dosage: 800 mg, qd
     Route: 048
     Dates: start: 201203, end: 201203
  3. REBETOL [Suspect]
     Dosage: 600 mg, qd
     Route: 048
     Dates: start: 201203, end: 201203
  4. TELAVIC [Suspect]
     Indication: HEPATITIS C
     Dosage: 2250 mg, qd
     Route: 048
     Dates: start: 201203, end: 201203
  5. TRIAZOLAM [Concomitant]
     Dosage: 0.25 mg, qd
  6. [THERAPY UNSPECIFIED] [Concomitant]
     Indication: BACK PAIN
     Dosage: 50 mg, qd
     Route: 048

REACTIONS (2)
  - Renal tubular necrosis [Recovering/Resolving]
  - Escherichia urinary tract infection [Recovering/Resolving]
